FAERS Safety Report 20876396 (Version 1)
Quarter: 2022Q2

REPORT INFORMATION
  Report Type: Spontaneous
  Country: DE (occurrence: None)
  Receive Date: 20220526
  Receipt Date: 20220526
  Transmission Date: 20220721
  Serious: Yes (Other)
  Sender: FDA-Public Use
  Company Number: DE-MICRO LABS LIMITED-ML2022-02283

PATIENT
  Age: 12 Month
  Sex: Female

DRUGS (4)
  1. LEVETIRACETAM [Suspect]
     Active Substance: LEVETIRACETAM
  2. PHENOBARBITAL [Suspect]
     Active Substance: PHENOBARBITAL
  3. TOPIRAMATE [Suspect]
     Active Substance: TOPIRAMATE
  4. LAMOTRIGINE [Suspect]
     Active Substance: LAMOTRIGINE

REACTIONS (1)
  - Epilepsy [Unknown]
